FAERS Safety Report 8107831-5 (Version None)
Quarter: 2012Q1

REPORT INFORMATION
  Report Type: 
  Country: None (occurrence: None)
  Receive Date: 20120202
  Receipt Date: 20120126
  Transmission Date: 20120608
  Serious: Yes (Death, Hospitalization)
  Sender: FDA-Public Use
  Company Number: CH-SANOFI-AVENTIS-2011SA081454

PATIENT
  Age: 53 Year
  Sex: Male
  Weight: 81 kg

DRUGS (9)
  1. DOCETAXEL [Suspect]
     Dosage: DAY 1 OF 21 DAY CYCLE
     Route: 041
     Dates: start: 20111020, end: 20111020
  2. DEXAMETHASONE [Concomitant]
     Indication: PREMEDICATION
     Dates: start: 20111117, end: 20111127
  3. DOCETAXEL [Suspect]
     Indication: NON-SMALL CELL LUNG CANCER
     Dosage: DAY 1 OF 21 DAY CYCLE
     Route: 041
     Dates: start: 20110727, end: 20110727
  4. BLINDED THERAPY [Suspect]
     Indication: NON-SMALL CELL LUNG CANCER
     Dosage: DAY 1 OF 21 DAY CYCLE
     Route: 042
     Dates: start: 20110727, end: 20110727
  5. BLINDED THERAPY [Suspect]
     Dosage: DAY 1 OF 21 DAY CYCLE
     Route: 042
     Dates: start: 20111020, end: 20111020
  6. ASPIRIN [Concomitant]
     Indication: MYOCARDIAL INFARCTION
     Dates: start: 20100301
  7. PANTOPRAZOLE [Concomitant]
     Indication: PROPHYLAXIS
     Dates: start: 20100301
  8. DEXAMETHASONE [Concomitant]
     Dates: start: 20111117, end: 20111127
  9. CLEMASTINE FUMARATE [Concomitant]
     Indication: PREMEDICATION
     Dates: start: 20111020, end: 20111020

REACTIONS (4)
  - HYPONATRAEMIA [None]
  - FALL [None]
  - NEOPLASM PROGRESSION [None]
  - CONFUSIONAL STATE [None]
